FAERS Safety Report 23405301 (Version 1)
Quarter: 2024Q1

REPORT INFORMATION
  Report Type: Spontaneous
  Country: US (occurrence: US)
  Receive Date: 20240116
  Receipt Date: 20240116
  Transmission Date: 20240410
  Serious: Yes (Hospitalization, Disabling, Other)
  Sender: FDA-Public Use
  Company Number: US-MYLANLABS-2024M1002748

PATIENT
  Age: 56 Year
  Sex: Female

DRUGS (20)
  1. ZIPRASIDONE HYDROCHLORIDE [Suspect]
     Active Substance: ZIPRASIDONE HYDROCHLORIDE
     Indication: Weight increased
     Dosage: 80 MILLIGRAM, QD
     Route: 065
  2. ESCITALOPRAM [Suspect]
     Active Substance: ESCITALOPRAM OXALATE
     Indication: Post-traumatic stress disorder
     Dosage: 10 MILLIGRAM
     Route: 065
     Dates: start: 2015, end: 2018
  3. ESCITALOPRAM [Suspect]
     Active Substance: ESCITALOPRAM OXALATE
     Indication: Anxiety
     Dosage: 10 MILLIGRAM
     Route: 065
     Dates: start: 20231223
  4. ESCITALOPRAM [Suspect]
     Active Substance: ESCITALOPRAM OXALATE
     Indication: Depression
  5. ESCITALOPRAM [Suspect]
     Active Substance: ESCITALOPRAM OXALATE
     Indication: Post-traumatic stress disorder
     Dosage: 20 MILLIGRAM, QD
     Route: 065
     Dates: start: 2018
  6. ESCITALOPRAM [Suspect]
     Active Substance: ESCITALOPRAM OXALATE
     Indication: Anxiety
  7. ESCITALOPRAM [Suspect]
     Active Substance: ESCITALOPRAM OXALATE
     Indication: Depression
  8. PHENTERMINE HYDROCHLORIDE [Suspect]
     Active Substance: PHENTERMINE HYDROCHLORIDE
     Indication: Weight increased
     Dosage: 20 MILLIGRAM, QD (1 PILL WITH BIG GLASS OF WATER 30 MINUTES BEFORE STARTING HER DAY)
     Route: 065
     Dates: start: 2022
  9. ARIPIPRAZOLE [Suspect]
     Active Substance: ARIPIPRAZOLE
     Indication: Product used for unknown indication
     Dosage: UNK
     Route: 065
     Dates: start: 2022
  10. ESCITALOPRAM OXALATE [Suspect]
     Active Substance: ESCITALOPRAM OXALATE
     Indication: Post-traumatic stress disorder
     Dosage: 20 MILLIGRAM, QD
     Route: 065
     Dates: start: 2018
  11. ESCITALOPRAM OXALATE [Suspect]
     Active Substance: ESCITALOPRAM OXALATE
     Indication: Anxiety
     Dosage: 30 MILLIGRAM, QD
     Route: 065
     Dates: start: 202206
  12. ESCITALOPRAM OXALATE [Suspect]
     Active Substance: ESCITALOPRAM OXALATE
     Indication: Depression
  13. GABAPENTIN [Suspect]
     Active Substance: GABAPENTIN
     Indication: Nerve injury
     Dosage: UNK (1800 MG/DAY) (TWO 300MG PILLS FOR EVERY 8 HOURS)
     Route: 065
     Dates: start: 2015
  14. GABAPENTIN [Suspect]
     Active Substance: GABAPENTIN
     Indication: Neuralgia
     Dosage: 300 MILLIGRAM, QD
     Route: 065
  15. QUETIAPINE [Suspect]
     Active Substance: QUETIAPINE
     Indication: Sleep disorder
     Dosage: 2 DOSAGE FORM (2 TABLETS AT NIGHT)
     Route: 065
     Dates: start: 2022, end: 2022
  16. QUETIAPINE FUMARATE [Suspect]
     Active Substance: QUETIAPINE FUMARATE
     Indication: Sleep disorder
     Dosage: 2 DOSAGE FORM (2 TABLETS AT NIGHT)
     Route: 065
     Dates: start: 2022, end: 2022
  17. FLUOXETINE [Suspect]
     Active Substance: FLUOXETINE HYDROCHLORIDE
     Indication: Product used for unknown indication
     Dosage: UNK
     Route: 065
     Dates: start: 2022
  18. ARIPIPRAZOLE [Suspect]
     Active Substance: ARIPIPRAZOLE
     Indication: Product used for unknown indication
     Dosage: UNK
     Route: 065
     Dates: start: 2022
  19. DIVALPROEX SODIUM [Suspect]
     Active Substance: DIVALPROEX SODIUM
     Indication: Prophylaxis
     Dosage: 500 MILLIGRAM, BID
     Route: 048
     Dates: start: 2022
  20. CYCLOBENZAPRINE [Concomitant]
     Active Substance: CYCLOBENZAPRINE
     Dosage: 10 MILLIGRAM, TID
     Route: 065

REACTIONS (26)
  - Hip arthroplasty [Unknown]
  - Hallucination, auditory [Unknown]
  - Schizoaffective disorder [Unknown]
  - Cerebral disorder [Unknown]
  - Suicidal ideation [Unknown]
  - Suicide attempt [Unknown]
  - Fatigue [Unknown]
  - Somnolence [Unknown]
  - Weight increased [Unknown]
  - Mania [Unknown]
  - Injury [Unknown]
  - Osteoarthritis [Unknown]
  - Cognitive disorder [Unknown]
  - Memory impairment [Unknown]
  - Thirst [Unknown]
  - Paranoia [Unknown]
  - Mental disorder [Unknown]
  - Swelling [Unknown]
  - Performance status decreased [Unknown]
  - Head injury [Unknown]
  - Prescribed overdose [Unknown]
  - Wrong technique in product usage process [Unknown]
  - Fall [Unknown]
  - Thinking abnormal [Unknown]
  - Pain [Unknown]
  - Unevaluable event [Unknown]
